FAERS Safety Report 8145060-X (Version None)
Quarter: 2012Q1

REPORT INFORMATION
  Report Type: 
  Country: None (occurrence: None)
  Receive Date: 20120217
  Receipt Date: 20120206
  Transmission Date: 20120608
  Serious: Yes (Other)
  Sender: FDA-Public Use
  Company Number: PHHY2011JP097816

PATIENT
  Sex: Male
  Weight: 71 kg

DRUGS (4)
  1. ONCOVIN [Concomitant]
     Dosage: 1 MG, UNK
     Route: 041
     Dates: start: 20111012, end: 20111020
  2. PREDNISOLONE ACETATE [Concomitant]
     Dosage: 70 MG,
     Route: 048
  3. PREDNISOLONE [Concomitant]
     Dosage: 100 MG,
     Route: 041
     Dates: start: 20111012
  4. GLEEVEC [Suspect]
     Indication: ACUTE LYMPHOCYTIC LEUKAEMIA
     Dosage: 600 MG, DAILY
     Route: 048
     Dates: start: 20111020, end: 20111024

REACTIONS (3)
  - HAEMOLYSIS [None]
  - HAPTOGLOBIN DECREASED [None]
  - BLOOD BILIRUBIN UNCONJUGATED INCREASED [None]
